FAERS Safety Report 11402520 (Version 1)
Quarter: 2015Q3

REPORT INFORMATION
  Report Type: Spontaneous
  Country: US (occurrence: US)
  Receive Date: 20150821
  Receipt Date: 20150821
  Transmission Date: 20151125
  Serious: No
  Sender: FDA-Public Use
  Company Number: US-ROCHE-1281990

PATIENT
  Sex: Male

DRUGS (6)
  1. WELLBUTRIN [Concomitant]
     Active Substance: BUPROPION HYDROCHLORIDE
     Route: 065
  2. VICTRELIS [Suspect]
     Active Substance: BOCEPREVIR
     Indication: CHRONIC HEPATITIS C
     Route: 048
     Dates: start: 20130913
  3. PEGASYS [Suspect]
     Active Substance: PEGINTERFERON ALFA-2A
     Indication: CHRONIC HEPATITIS C
     Route: 058
     Dates: start: 20130908
  4. WELLBUTRIN [Concomitant]
     Active Substance: BUPROPION HYDROCHLORIDE
     Route: 065
  5. COPEGUS [Suspect]
     Active Substance: RIBAVIRIN
     Indication: CHRONIC HEPATITIS C
     Dosage: DIVIDED DOSES
     Route: 048
     Dates: start: 20130908
  6. ULTRAM [Concomitant]
     Active Substance: TRAMADOL HYDROCHLORIDE
     Dosage: 1-2 TABLET DAILY
     Route: 065

REACTIONS (13)
  - Photosensitivity reaction [Unknown]
  - Arthralgia [Unknown]
  - Headache [Unknown]
  - Insomnia [Unknown]
  - Rash pruritic [Unknown]
  - Nausea [Unknown]
  - Pain in extremity [Unknown]
  - Memory impairment [Unknown]
  - Depression [Unknown]
  - Urticaria [Unknown]
  - Vomiting [Unknown]
  - Weight decreased [Unknown]
  - Dry mouth [Unknown]
